FAERS Safety Report 4628785-X (Version None)
Quarter: 2005Q1

REPORT INFORMATION
  Report Type: 
  Country: None (occurrence: None)
  Receive Date: 20050107
  Receipt Date: 20040921
  Transmission Date: 20050727
  Serious: No
  Sender: FDA-Public Use
  Company Number: 234786K04USA

PATIENT
  Age: 42 Year
  Sex: Female

DRUGS (4)
  1. REBIF [Suspect]
     Indication: MULTIPLE SCLEROSIS
     Dosage: 44 MCG, 3 IN 1 WEEKS, SUBCUTANEOUS
     Route: 058
     Dates: start: 20040726
  2. NEURONTIN [Concomitant]
  3. LEXAPRO [Concomitant]
  4. ADDERALL (OBETROL) [Concomitant]

REACTIONS (9)
  - BLOOD IRON DECREASED [None]
  - BLOOD POTASSIUM DECREASED [None]
  - CHILLS [None]
  - FEELING ABNORMAL [None]
  - HEADACHE [None]
  - HYPOTENSION [None]
  - INJECTION SITE PAIN [None]
  - INJECTION SITE REACTION [None]
  - MYALGIA [None]
